FAERS Safety Report 9224291 (Version 1)
Quarter: 2013Q1

REPORT INFORMATION
  Report Type: Spontaneous
  Country: US (occurrence: US)
  Receive Date: 20120914
  Receipt Date: 20120914
  Transmission Date: 20140127
  Serious: No
  Sender: FDA-Public Use
  Company Number: JPI-P-022141

PATIENT
  Age: 25 Year
  Sex: Female
  Weight: 63.5 kg

DRUGS (2)
  1. XYREM (500 MG/ML SOLUTION)(SODIUM OXYBATE) [Suspect]
     Indication: CATAPLEXY
     Route: 048
     Dates: start: 201201
  2. XYREM (500 MG/ML SOLUTION)(SODIUM OXYBATE) [Suspect]
     Indication: SOMNOLENCE
     Route: 048
     Dates: start: 201201

REACTIONS (2)
  - Weight decreased [None]
  - Decreased appetite [None]
